FAERS Safety Report 24728884 (Version 2)
Quarter: 2025Q3

REPORT INFORMATION
  Report Type: Spontaneous
  Country: EU (occurrence: EU)
  Receive Date: 20241212
  Receipt Date: 20250810
  Transmission Date: 20251021
  Serious: Yes (Hospitalization, Other)
  Sender: ALEXION PHARMACEUTICALS
  Company Number: None

PATIENT
  Age: 6 Month
  Sex: Male
  Weight: 8.6 kg

DRUGS (1)
  1. BEYFORTUS [Suspect]
     Active Substance: NIRSEVIMAB-ALIP
     Indication: Pertussis immunisation
     Route: 065
     Dates: start: 20241016, end: 20241016

REACTIONS (6)
  - Muscle twitching [Recovered/Resolved]
  - Dyspnoea [Recovered/Resolved]
  - Eye movement disorder [Recovered/Resolved]
  - Hypotonia [Recovered/Resolved]
  - Pallor [Recovered/Resolved]
  - Loss of consciousness [Recovered/Resolved]

NARRATIVE: CASE EVENT DATE: 20241016
